FAERS Safety Report 23444029 (Version 1)
Quarter: 2024Q1

REPORT INFORMATION
  Report Type: Report from Study
  Country: US (occurrence: None)
  Receive Date: 20240125
  Receipt Date: 20240125
  Transmission Date: 20240409
  Serious: Yes (Other)
  Sender: FDA-Public Use
  Company Number: 2024A013966

PATIENT
  Sex: Male

DRUGS (2)
  1. CALQUENCE [Suspect]
     Active Substance: ACALABRUTINIB
     Dosage: UNKNOWN
     Route: 048
  2. BRUKINSA [Suspect]
     Active Substance: ZANUBRUTINIB
     Dates: start: 20240110

REACTIONS (5)
  - Cardiac valve disease [Unknown]
  - Pain in extremity [Unknown]
  - Panic attack [Unknown]
  - Stress [Unknown]
  - Epistaxis [Recovered/Resolved]
